FAERS Safety Report 22379343 (Version 2)
Quarter: 2023Q2

REPORT INFORMATION
  Report Type: Spontaneous
  Country: AU (occurrence: AU)
  Receive Date: 20230529
  Receipt Date: 20230530
  Transmission Date: 20230722
  Serious: Yes (Other)
  Sender: FDA-Public Use
  Company Number: AU-LA JOLLA PHARMACEUTICAL COMPANY-0000445

PATIENT

DRUGS (2)
  1. GIAPREZA [Suspect]
     Active Substance: ANGIOTENSIN II
     Indication: Hypotension
     Dosage: 5 NG/KG/MIN (MAINTENANCE DOSE: 1.25-40NG/KG/MIN)
     Dates: start: 20210326, end: 20210402
  2. NOREPINEPHRINE [Concomitant]
     Active Substance: NOREPINEPHRINE
     Indication: Hypotension
     Dosage: 9 MICROGRAM PER MINUTE
     Dates: start: 20210326, end: 20210402

REACTIONS (2)
  - Acute kidney injury [Recovered/Resolved]
  - Deep vein thrombosis [Recovered/Resolved]

NARRATIVE: CASE EVENT DATE: 20210329
